FAERS Safety Report 20757558 (Version 2)
Quarter: 2022Q2

REPORT INFORMATION
  Report Type: Spontaneous
  Country: US (occurrence: US)
  Receive Date: 20220427
  Receipt Date: 20220520
  Transmission Date: 20220721
  Serious: Yes (Other)
  Sender: FDA-Public Use
  Company Number: US-NOVARTISPH-NVSC2022US095588

PATIENT
  Age: 48 Year
  Sex: Male
  Weight: 69.4 kg

DRUGS (51)
  1. CLOFAZIMINE [Suspect]
     Active Substance: CLOFAZIMINE
     Indication: Mycobacterium avium complex infection
     Dosage: 50 MG, BID
     Route: 048
     Dates: start: 20201124
  2. CLOFAZIMINE [Suspect]
     Active Substance: CLOFAZIMINE
     Dosage: 50 MG, BID
     Route: 048
     Dates: start: 20210115
  3. CLOFAZIMINE [Suspect]
     Active Substance: CLOFAZIMINE
     Dosage: 50 MG, BID
     Route: 048
     Dates: start: 20210125
  4. CLOFAZIMINE [Suspect]
     Active Substance: CLOFAZIMINE
     Dosage: 50 MG, BID
     Route: 048
     Dates: start: 20210325
  5. CLOFAZIMINE [Suspect]
     Active Substance: CLOFAZIMINE
     Dosage: 50 MG, BID
     Route: 048
     Dates: start: 20210816
  6. CLOFAZIMINE [Suspect]
     Active Substance: CLOFAZIMINE
     Dosage: 50 MG, BID
     Route: 048
     Dates: start: 20210915
  7. CLOFAZIMINE [Suspect]
     Active Substance: CLOFAZIMINE
     Dosage: 50 MG, BID
     Route: 048
     Dates: start: 20211006
  8. CLOFAZIMINE [Suspect]
     Active Substance: CLOFAZIMINE
     Dosage: 50 MG, BID
     Route: 048
     Dates: start: 20211119
  9. CLOFAZIMINE [Suspect]
     Active Substance: CLOFAZIMINE
     Dosage: 50 MG, BID
     Route: 048
     Dates: start: 20220202
  10. CLOFAZIMINE [Suspect]
     Active Substance: CLOFAZIMINE
     Dosage: 50 MG, BID
     Route: 048
     Dates: start: 20220303
  11. ETHAMBUTOL [Concomitant]
     Active Substance: ETHAMBUTOL HYDROCHLORIDE
     Indication: Mycobacterium avium complex infection
     Dosage: 1600 MG, QD
     Route: 065
     Dates: start: 20201104
  12. ETHAMBUTOL [Concomitant]
     Active Substance: ETHAMBUTOL HYDROCHLORIDE
     Dosage: 1600 MG, QD
     Route: 065
     Dates: start: 20210115
  13. ETHAMBUTOL [Concomitant]
     Active Substance: ETHAMBUTOL HYDROCHLORIDE
     Dosage: 400 MG, QD
     Route: 065
  14. ETHAMBUTOL [Concomitant]
     Active Substance: ETHAMBUTOL HYDROCHLORIDE
     Dosage: 400 MG, QD
     Route: 065
     Dates: start: 20210325
  15. ETHAMBUTOL [Concomitant]
     Active Substance: ETHAMBUTOL HYDROCHLORIDE
     Dosage: 400 MG, QD
     Route: 065
     Dates: start: 20210816
  16. ETHAMBUTOL [Concomitant]
     Active Substance: ETHAMBUTOL HYDROCHLORIDE
     Dosage: 400 MG, QD
     Route: 065
     Dates: start: 20210915
  17. ETHAMBUTOL [Concomitant]
     Active Substance: ETHAMBUTOL HYDROCHLORIDE
     Dosage: 400 MG, QD
     Route: 065
     Dates: start: 20211006
  18. ETHAMBUTOL [Concomitant]
     Active Substance: ETHAMBUTOL HYDROCHLORIDE
     Dosage: 400 MG, QD
     Route: 065
     Dates: start: 20211119
  19. ETHAMBUTOL [Concomitant]
     Active Substance: ETHAMBUTOL HYDROCHLORIDE
     Dosage: 400 MG, QD
     Route: 065
     Dates: start: 20220202
  20. ETHAMBUTOL [Concomitant]
     Active Substance: ETHAMBUTOL HYDROCHLORIDE
     Dosage: 400 MG, QD
     Route: 065
     Dates: start: 20220316
  21. CAROTIN [Concomitant]
     Indication: Mycobacterium avium complex infection
     Dosage: 600 MG, QD
     Route: 065
     Dates: start: 20201104
  22. CAROTIN [Concomitant]
     Dosage: 600 MG, QD
     Route: 065
     Dates: start: 20210115
  23. CAROTIN [Concomitant]
     Dosage: 600 MG, QD
     Route: 065
     Dates: start: 20210325
  24. CAROTIN [Concomitant]
     Dosage: 600 MG, QD
     Route: 065
     Dates: start: 20210816
  25. CAROTIN [Concomitant]
     Dosage: 600 MG, QD
     Route: 065
     Dates: start: 20210915
  26. CAROTIN [Concomitant]
     Dosage: 600 MG, QD
     Route: 065
     Dates: start: 20211006
  27. CAROTIN [Concomitant]
     Dosage: 600 MG, QD
     Route: 065
     Dates: start: 20211119
  28. CAROTIN [Concomitant]
     Dosage: 600 MG, QD
     Route: 065
     Dates: start: 20220202
  29. CAROTIN [Concomitant]
     Dosage: 600 MG, QD
     Route: 065
     Dates: start: 20220316
  30. PYRIDOXINE HYDROCHLORIDE [Concomitant]
     Active Substance: PYRIDOXINE HYDROCHLORIDE
     Indication: Mycobacterium avium complex infection
     Dosage: 100 MG, QD
     Route: 065
     Dates: start: 20201104
  31. PYRIDOXINE HYDROCHLORIDE [Concomitant]
     Active Substance: PYRIDOXINE HYDROCHLORIDE
     Dosage: 100 MG, QD
     Route: 065
     Dates: start: 20210115
  32. PYRIDOXINE HYDROCHLORIDE [Concomitant]
     Active Substance: PYRIDOXINE HYDROCHLORIDE
     Dosage: 100 MG, QD
     Route: 065
     Dates: start: 20210325
  33. PYRIDOXINE HYDROCHLORIDE [Concomitant]
     Active Substance: PYRIDOXINE HYDROCHLORIDE
     Dosage: 100 MG, QD
     Route: 065
     Dates: start: 20210816
  34. PYRIDOXINE HYDROCHLORIDE [Concomitant]
     Active Substance: PYRIDOXINE HYDROCHLORIDE
     Dosage: 100 MG, QD
     Route: 065
     Dates: start: 20210915
  35. PYRIDOXINE HYDROCHLORIDE [Concomitant]
     Active Substance: PYRIDOXINE HYDROCHLORIDE
     Dosage: 100 MG, QD
     Route: 065
     Dates: start: 20211006
  36. PYRIDOXINE HYDROCHLORIDE [Concomitant]
     Active Substance: PYRIDOXINE HYDROCHLORIDE
     Dosage: 100 MG, QD
     Route: 065
     Dates: start: 20211119
  37. PYRIDOXINE HYDROCHLORIDE [Concomitant]
     Active Substance: PYRIDOXINE HYDROCHLORIDE
     Dosage: 100 MG, QD
     Route: 065
     Dates: start: 20220202
  38. PYRIDOXINE HYDROCHLORIDE [Concomitant]
     Active Substance: PYRIDOXINE HYDROCHLORIDE
     Dosage: 100 MG, QD
     Route: 065
     Dates: start: 20220316
  39. RIFAMPIN [Concomitant]
     Active Substance: RIFAMPIN
     Indication: Mycobacterium avium complex infection
     Dosage: 300 MG, BID
     Route: 065
     Dates: start: 20201104
  40. RIFAMPIN [Concomitant]
     Active Substance: RIFAMPIN
     Dosage: 300 MG, BID
     Route: 065
     Dates: start: 20210115
  41. RIFAMPIN [Concomitant]
     Active Substance: RIFAMPIN
     Dosage: 300 MG, BID
     Route: 065
     Dates: start: 20210325
  42. RIFAMPIN [Concomitant]
     Active Substance: RIFAMPIN
     Dosage: 300 MG, BID
     Route: 065
     Dates: start: 20210816
  43. RIFAMPIN [Concomitant]
     Active Substance: RIFAMPIN
     Dosage: 300 MG, BID
     Route: 065
     Dates: start: 20210915
  44. RIFAMPIN [Concomitant]
     Active Substance: RIFAMPIN
     Dosage: 300 MG, BID
     Route: 065
     Dates: start: 20211006
  45. RIFAMPIN [Concomitant]
     Active Substance: RIFAMPIN
     Dosage: 300 MG, BID
     Route: 065
     Dates: start: 20211119
  46. RIFAMPIN [Concomitant]
     Active Substance: RIFAMPIN
     Dosage: 300 MG, BID
     Route: 065
     Dates: start: 20220202
  47. RIFAMPIN [Concomitant]
     Active Substance: RIFAMPIN
     Dosage: 300 MG, BID
     Route: 065
     Dates: start: 20220316
  48. AMIKACIN [Concomitant]
     Active Substance: AMIKACIN
     Indication: Mycobacterium avium complex infection
     Dosage: 1000 MG M,W,F
     Route: 065
     Dates: start: 20201123
  49. AMIKACIN [Concomitant]
     Active Substance: AMIKACIN
     Dosage: 1000 MG M,W,F
     Route: 065
     Dates: start: 20210115, end: 20210202
  50. AMIKACIN [Concomitant]
     Active Substance: AMIKACIN
     Dosage: 1000 MG M,W,F
     Route: 065
     Dates: start: 20210205
  51. GABAPENTIN [Concomitant]
     Active Substance: GABAPENTIN
     Indication: Lumbar radiculopathy
     Dosage: 300 MG, BID
     Route: 065

REACTIONS (18)
  - Neuropathy peripheral [Recovered/Resolved]
  - Hypoaesthesia [Recovered/Resolved]
  - Muscle spasms [Recovered/Resolved]
  - Gastrointestinal pain [Recovered/Resolved]
  - Tinnitus [Recovered/Resolved]
  - Ear congestion [Recovered/Resolved]
  - Dizziness [Recovered/Resolved]
  - Diarrhoea [Recovered/Resolved]
  - Nausea [Recovered/Resolved]
  - Cough [Not Recovered/Not Resolved]
  - Musculoskeletal chest pain [Recovered/Resolved]
  - Dry skin [Not Recovered/Not Resolved]
  - Back pain [Recovered/Resolved]
  - Paraesthesia [Recovered/Resolved]
  - Sciatica [Recovered/Resolved]
  - Pain in extremity [Recovering/Resolving]
  - Diaphragmatic spasm [Recovered/Resolved]
  - Muscle twitching [Not Recovered/Not Resolved]

NARRATIVE: CASE EVENT DATE: 20210115
